FAERS Safety Report 7389244-7 (Version None)
Quarter: 2011Q2

REPORT INFORMATION
  Report Type: 
  Country: None (occurrence: None)
  Receive Date: 20110401
  Receipt Date: 20110103
  Transmission Date: 20111010
  Serious: No
  Sender: FDA-Public Use
  Company Number: US-BAYER-2011-027840

PATIENT
  Sex: Female
  Weight: 61.678 kg

DRUGS (5)
  1. MULTI-VITAMINS [Concomitant]
  2. ALKA-SELTZER PLUS COLD SPARKLING ORIGINAL [Suspect]
     Indication: NASOPHARYNGITIS
     Dosage: BOTTLE COUNT 20S
     Route: 048
     Dates: start: 20101230, end: 20110103
  3. ASPIRIN [Concomitant]
  4. CLARITIN [Concomitant]
  5. DELSYM [Concomitant]

REACTIONS (2)
  - DIZZINESS [None]
  - BLOOD PRESSURE INCREASED [None]
